FAERS Safety Report 8948115 (Version 1)
Quarter: 2012Q4

REPORT INFORMATION
  Report Type: Spontaneous
  Country: JP (occurrence: None)
  Receive Date: 20121127
  Receipt Date: 20121127
  Transmission Date: 20130627
  Serious: No
  Sender: FDA-Public Use
  Company Number: TCI2012A06674

PATIENT
  Age: 56 Year
  Sex: Female

DRUGS (1)
  1. LANSAP [Suspect]
     Indication: HELICOBACTER PYLORI INFECTION
     Dosage: 1 Card (0.5 Card, 2 in 1 D)
     Route: 048
     Dates: start: 20121030, end: 20121105

REACTIONS (1)
  - Eczema [None]
